FAERS Safety Report 5963912-3 (Version None)
Quarter: 2008Q4

REPORT INFORMATION
  Report Type: 
  Country: None (occurrence: None)
  Receive Date: 20081121
  Receipt Date: 20081121
  Transmission Date: 20090506
  Serious: No
  Sender: FDA-Public Use
  Company Number: None

PATIENT
  Age: 91 Year
  Sex: Female
  Weight: 49.8957 kg

DRUGS (10)
  1. ATIVAN [Suspect]
     Indication: ANXIETY
     Dosage: 1/2 OF .05 GR. BEDTIME ORAL
     Route: 048
     Dates: start: 20081021
  2. ATIVAN [Suspect]
     Indication: INSOMNIA
     Dosage: 1/2 OF .05 GR. BEDTIME ORAL
     Route: 048
     Dates: start: 20081021
  3. ATIVAN [Suspect]
     Indication: NAUSEA
     Dosage: 1/2 OF .05 GR. BEDTIME ORAL
     Route: 048
     Dates: start: 20081021
  4. ATIVAN [Suspect]
     Indication: ANXIETY
     Dosage: 1/2 OF .05 GR. BEDTIME ORAL
     Route: 048
     Dates: start: 20081022
  5. ATIVAN [Suspect]
     Indication: INSOMNIA
     Dosage: 1/2 OF .05 GR. BEDTIME ORAL
     Route: 048
     Dates: start: 20081022
  6. ATIVAN [Suspect]
     Indication: NAUSEA
     Dosage: 1/2 OF .05 GR. BEDTIME ORAL
     Route: 048
     Dates: start: 20081022
  7. ATIVAN [Suspect]
     Indication: ANXIETY
     Dosage: 1/2 OF .05 GR. BEDTIME ORAL
     Route: 048
     Dates: start: 20081023
  8. ATIVAN [Suspect]
     Indication: INSOMNIA
     Dosage: 1/2 OF .05 GR. BEDTIME ORAL
     Route: 048
     Dates: start: 20081023
  9. ATIVAN [Suspect]
     Indication: NAUSEA
     Dosage: 1/2 OF .05 GR. BEDTIME ORAL
     Route: 048
     Dates: start: 20081023
  10. SENNA [Concomitant]

REACTIONS (3)
  - AGITATION [None]
  - NAUSEA [None]
  - POOR QUALITY SLEEP [None]
